FAERS Safety Report 16238862 (Version 1)
Quarter: 2019Q2

REPORT INFORMATION
  Report Type: Spontaneous
  Country: US (occurrence: US)
  Receive Date: 20190424
  Receipt Date: 20190424
  Transmission Date: 20190711
  Serious: Yes (Other)
  Sender: FDA-Public Use
  Company Number: None

PATIENT
  Age: 75 Year
  Sex: Female
  Weight: 78.8 kg

DRUGS (9)
  1. NOVOLIN R [Concomitant]
     Active Substance: INSULIN HUMAN
  2. NOVOLIN N [Concomitant]
     Active Substance: INSULIN HUMAN
  3. MULTIVITAMIN [Concomitant]
     Active Substance: VITAMINS
  4. CHLORTHALIDONE. [Concomitant]
     Active Substance: CHLORTHALIDONE
  5. PROPRANOLOL ER [Concomitant]
     Active Substance: PROPRANOLOL HYDROCHLORIDE
  6. TRULICITY [Suspect]
     Active Substance: DULAGLUTIDE
     Indication: TYPE 2 DIABETES MELLITUS
     Dosage: ?          OTHER FREQUENCY:ONCE A WEEK;?
     Route: 058
     Dates: start: 20190112, end: 20190323
  7. FLUTICASONE NASAL SPRAY [Concomitant]
     Active Substance: FLUTICASONE
  8. ASPIRIN. [Concomitant]
     Active Substance: ASPIRIN
  9. ATORVASTATIN [Concomitant]
     Active Substance: ATORVASTATIN

REACTIONS (5)
  - Constipation [None]
  - Gastrooesophageal reflux disease [None]
  - Nausea [None]
  - Therapy change [None]
  - Abdominal discomfort [None]

NARRATIVE: CASE EVENT DATE: 20190317
